FAERS Safety Report 6706716-6 (Version None)
Quarter: 2010Q2

REPORT INFORMATION
  Report Type: 
  Country: None (occurrence: None)
  Receive Date: 20100503
  Receipt Date: 20100422
  Transmission Date: 20101027
  Serious: Yes (Hospitalization)
  Sender: FDA-Public Use
  Company Number: US-JNJFOC-20070803932

PATIENT
  Sex: Female
  Weight: 73.94 kg

DRUGS (3)
  1. ORTHO EVRA [Suspect]
     Indication: CONTRACEPTION
  2. SOMA [Concomitant]
  3. LODINE [Concomitant]

REACTIONS (3)
  - DEEP VEIN THROMBOSIS [None]
  - MENORRHAGIA [None]
  - PULMONARY EMBOLISM [None]
